FAERS Safety Report 23576160 (Version 1)
Quarter: 2024Q1

REPORT INFORMATION
  Report Type: Spontaneous
  Country: US (occurrence: US)
  Receive Date: 20240228
  Receipt Date: 20240228
  Transmission Date: 20240410
  Serious: No
  Sender: FDA-Public Use
  Company Number: US-GENMAB-2023-02394

PATIENT
  Age: 48 Year
  Sex: Female

DRUGS (1)
  1. EPKINLY [Suspect]
     Active Substance: EPCORITAMAB-BYSP
     Dosage: UNK (ON FIVE VIALS, TOP DOSE)
     Route: 058

REACTIONS (1)
  - Conjunctivitis [Unknown]
